FAERS Safety Report 22267181 (Version 1)
Quarter: 2023Q2

REPORT INFORMATION
  Report Type: Report from Study
  Country: US (occurrence: US)
  Receive Date: 20230428
  Receipt Date: 20230428
  Transmission Date: 20230721
  Serious: Yes (Other)
  Sender: FDA-Public Use
  Company Number: US-JNJFOC-20230443322

PATIENT
  Sex: Male

DRUGS (10)
  1. ZYTIGA [Suspect]
     Active Substance: ABIRATERONE ACETATE
     Indication: Hormone-dependent prostate cancer
     Route: 048
  2. ZYTIGA [Suspect]
     Active Substance: ABIRATERONE ACETATE
     Indication: Prostate cancer metastatic
  3. ERLEADA [Suspect]
     Active Substance: APALUTAMIDE
     Indication: Hormone-dependent prostate cancer
     Route: 048
  4. ERLEADA [Suspect]
     Active Substance: APALUTAMIDE
     Indication: Prostate cancer metastatic
  5. RELUGOLIX [Suspect]
     Active Substance: RELUGOLIX
     Indication: Hormone-dependent prostate cancer
     Dosage: LOADING DOSE
     Route: 065
  6. RELUGOLIX [Suspect]
     Active Substance: RELUGOLIX
     Indication: Prostate cancer metastatic
     Dosage: DAILY DOSE 120 MG IN PART 1 AND 240 MG IN PART 2
     Route: 065
  7. PREDNISONE [Suspect]
     Active Substance: PREDNISONE
     Indication: Hormone-dependent prostate cancer
     Dosage: ONCE A DAY OR TWICE A DAY
     Route: 065
  8. PREDNISONE [Suspect]
     Active Substance: PREDNISONE
     Indication: Prostate cancer metastatic
  9. METHYLPREDNISOLONE [Suspect]
     Active Substance: METHYLPREDNISOLONE
     Indication: Hormone-dependent prostate cancer
     Route: 065
  10. METHYLPREDNISOLONE [Suspect]
     Active Substance: METHYLPREDNISOLONE
     Indication: Prostate cancer metastatic

REACTIONS (27)
  - Adverse event [Unknown]
  - Back pain [Unknown]
  - Testicular atrophy [Unknown]
  - Confusional state [Unknown]
  - Memory impairment [Unknown]
  - Fatigue [Unknown]
  - Hypertension [Unknown]
  - Constipation [Unknown]
  - Hot flush [Unknown]
  - Muscular weakness [Unknown]
  - Aspartate aminotransferase increased [Unknown]
  - Alanine aminotransferase increased [Unknown]
  - Libido decreased [Unknown]
  - Hypertriglyceridaemia [Unknown]
  - Hyperhidrosis [Unknown]
  - Diarrhoea [Unknown]
  - Nausea [Unknown]
  - Anaemia [Unknown]
  - Hypotrichosis [Unknown]
  - Night sweats [Unknown]
  - Dry mouth [Unknown]
  - Musculoskeletal pain [Unknown]
  - Headache [Unknown]
  - Rash [Unknown]
  - Alopecia [Unknown]
  - Asthenia [Unknown]
  - Pain [Unknown]
